FAERS Safety Report 14933119 (Version 4)
Quarter: 2019Q2

REPORT INFORMATION
  Report Type: Spontaneous
  Country: US (occurrence: US)
  Receive Date: 20180524
  Receipt Date: 20190513
  Transmission Date: 20190711
  Serious: No
  Sender: FDA-Public Use
  Company Number: US-PFIZER INC-2018213367

PATIENT
  Age: 62 Year
  Sex: Male
  Weight: 83.46 kg

DRUGS (1)
  1. VIAGRA [Suspect]
     Active Substance: SILDENAFIL CITRATE
     Indication: ERECTILE DYSFUNCTION
     Dosage: 100 MG, AS NEEDED
     Route: 048

REACTIONS (5)
  - Cough [Unknown]
  - Nasal congestion [Unknown]
  - Sneezing [Unknown]
  - Drug ineffective [Unknown]
  - Intentional product misuse [Unknown]
